FAERS Safety Report 11446387 (Version 1)
Quarter: 2015Q3

REPORT INFORMATION
  Report Type: Other
  Country: GB (occurrence: GB)
  Receive Date: 20150902
  Receipt Date: 20150902
  Transmission Date: 20151125
  Serious: Yes (Other)
  Sender: FDA-Public Use
  Company Number: GB-MYLANLABS-2015M1028667

PATIENT

DRUGS (7)
  1. OVITRELLE [Concomitant]
     Active Substance: CHORIOGONADOTROPIN ALFA
     Dosage: UNK
  2. TEMAZEPAM. [Suspect]
     Active Substance: TEMAZEPAM
     Indication: SEDATIVE THERAPY
     Dosage: 10 MG, UNK
     Route: 048
     Dates: start: 20150622, end: 20150622
  3. FENTANYL. [Suspect]
     Active Substance: FENTANYL
     Indication: SEDATIVE THERAPY
     Dosage: 50 ?G, UNK
     Route: 042
     Dates: start: 20150622, end: 20150622
  4. MIDAZOLAM [Suspect]
     Active Substance: MIDAZOLAM\MIDAZOLAM HYDROCHLORIDE
     Indication: SEDATIVE THERAPY
     Dosage: 1 MG, UNK
     Route: 042
     Dates: start: 20150622, end: 20150622
  5. GONAL-F [Concomitant]
     Active Substance: FOLLITROPIN
     Dosage: UNK
  6. LIGNOCAINE                         /00033401/ [Suspect]
     Active Substance: LIDOCAINE HYDROCHLORIDE
     Dosage: UNK
  7. SUPRECUR [Concomitant]
     Active Substance: BUSERELIN
     Dosage: UNK

REACTIONS (1)
  - Loss of consciousness [Recovered/Resolved]

NARRATIVE: CASE EVENT DATE: 20150622
